FAERS Safety Report 10566158 (Version 2)
Quarter: 2014Q4

REPORT INFORMATION
  Report Type: Spontaneous
  Country: US (occurrence: US)
  Receive Date: 20141105
  Receipt Date: 20141111
  Transmission Date: 20150529
  Serious: Yes (Hospitalization, Other)
  Sender: FDA-Public Use
  Company Number: US-PFIZER INC-2014303623

PATIENT
  Age: 57 Year
  Sex: Female
  Weight: 59 kg

DRUGS (1)
  1. REVATIO [Suspect]
     Active Substance: SILDENAFIL CITRATE
     Indication: PULMONARY ARTERIAL HYPERTENSION
     Dosage: 20 MG, 3X/DAY
     Route: 048
     Dates: start: 2010

REACTIONS (8)
  - Liver disorder [Unknown]
  - Dizziness [Unknown]
  - Pneumonia [Unknown]
  - Ammonia increased [Unknown]
  - Seizure [Unknown]
  - Presyncope [Unknown]
  - Myocardial infarction [Unknown]
  - Influenza [Unknown]

NARRATIVE: CASE EVENT DATE: 2014
